FAERS Safety Report 4738270-2 (Version None)
Quarter: 2005Q3

REPORT INFORMATION
  Report Type: 
  Country: None (occurrence: None)
  Receive Date: 20050809
  Receipt Date: 20050804
  Transmission Date: 20060218
  Serious: Yes (Other)
  Sender: FDA-Public Use
  Company Number: PHFR2005GB02683

PATIENT

DRUGS (3)
  1. NEORAL [Suspect]
     Indication: RENAL TRANSPLANT
  2. PREDNISOLONE [Concomitant]
  3. SIROLIMUS [Concomitant]

REACTIONS (1)
  - APLASIA PURE RED CELL [None]
